FAERS Safety Report 6744457-X (Version None)
Quarter: 2010Q2

REPORT INFORMATION
  Report Type: 
  Country: None (occurrence: None)
  Receive Date: 20100527
  Receipt Date: 20100517
  Transmission Date: 20101027
  Serious: Yes (Hospitalization)
  Sender: FDA-Public Use
  Company Number: US-BAXTER-2010BH006272

PATIENT
  Age: 60 Year
  Sex: Male

DRUGS (4)
  1. DIANEAL [Suspect]
     Indication: PERITONEAL DIALYSIS
     Route: 033
     Dates: end: 20100101
  2. DIANEAL [Suspect]
     Route: 033
     Dates: end: 20100101
  3. DIANEAL [Suspect]
     Indication: PERITONEAL DIALYSIS
     Route: 033
     Dates: end: 20100101
  4. DIANEAL [Suspect]
     Route: 033
     Dates: end: 20100101

REACTIONS (5)
  - ADVERSE EVENT [None]
  - BLOOD PRESSURE ABNORMAL [None]
  - BLOODY PERITONEAL EFFLUENT [None]
  - FEELING ABNORMAL [None]
  - FUNGAL PERITONITIS [None]
